FAERS Safety Report 5380568-1 (Version None)
Quarter: 2007Q3

REPORT INFORMATION
  Report Type: 
  Country: None (occurrence: None)
  Receive Date: 20070703
  Receipt Date: 20070625
  Transmission Date: 20080115
  Serious: Yes (Life-Threatening)
  Sender: FDA-Public Use
  Company Number: 2007-158589-NL

PATIENT
  Age: 78 Year
  Sex: Female

DRUGS (11)
  1. VECURONIUM BROMIDE [Suspect]
     Indication: INDUCTION OF ANAESTHESIA
     Dosage: INTRAVENOUS (NOS)
     Route: 042
     Dates: start: 20070510, end: 20070510
  2. URSODIOL [Concomitant]
  3. FLOPROPIONE [Concomitant]
  4. VALSARTAN [Concomitant]
  5. PRAVASTATIN SODIUM [Concomitant]
  6. LAFUTIDINE [Concomitant]
  7. NIFEDIPINE [Concomitant]
  8. INSULIN HUMAN [Concomitant]
  9. ASPIRIN [Concomitant]
  10. PENTAZOCINE LACTATE [Concomitant]
  11. ATROPINE SULFATE [Concomitant]

REACTIONS (7)
  - ALTERED STATE OF CONSCIOUSNESS [None]
  - BLOOD PRESSURE INCREASED [None]
  - CONVULSION [None]
  - HEART RATE INCREASED [None]
  - HYPOPNOEA [None]
  - LOSS OF CONSCIOUSNESS [None]
  - OXYGEN SATURATION DECREASED [None]
